FAERS Safety Report 10403365 (Version 4)
Quarter: 2015Q3

REPORT INFORMATION
  Report Type: Spontaneous
  Country: US (occurrence: US)
  Receive Date: 20140822
  Receipt Date: 20150721
  Transmission Date: 20151125
  Serious: Yes (Other)
  Sender: FDA-Public Use
  Company Number: US-ASTRAZENECA-2012SE69836

PATIENT
  Age: 54 Year
  Sex: Female
  Weight: 88.5 kg

DRUGS (18)
  1. NEXIUM [Suspect]
     Active Substance: ESOMEPRAZOLE MAGNESIUM
     Indication: GASTROOESOPHAGEAL REFLUX DISEASE
     Route: 048
     Dates: start: 2004
  2. CALTRATE [Concomitant]
     Active Substance: CALCIUM CARBONATE
     Indication: MUSCLE DISORDER
     Dosage: 1-2 TABLETS DAILY
     Route: 048
     Dates: start: 2014
  3. NEXIUM [Suspect]
     Active Substance: ESOMEPRAZOLE MAGNESIUM
     Indication: GASTROOESOPHAGEAL REFLUX DISEASE
     Route: 048
     Dates: start: 2004
  4. NEXIUM [Suspect]
     Active Substance: ESOMEPRAZOLE MAGNESIUM
     Indication: GASTROOESOPHAGEAL REFLUX DISEASE
     Route: 048
     Dates: start: 2014
  5. METOPROLOL [Suspect]
     Active Substance: METOPROLOL
     Indication: BLOOD PRESSURE ABNORMAL
     Route: 048
     Dates: start: 2014
  6. VITAMIN E [Concomitant]
     Active Substance: .ALPHA.-TOCOPHEROL
     Indication: CARDIOVASCULAR DISORDER
     Route: 048
     Dates: start: 201406
  7. NEXIUM [Suspect]
     Active Substance: ESOMEPRAZOLE MAGNESIUM
     Indication: GASTROOESOPHAGEAL REFLUX DISEASE
     Route: 048
     Dates: start: 2004, end: 201408
  8. MAGNESIUM [Concomitant]
     Active Substance: MAGNESIUM
     Indication: BLOOD MAGNESIUM DECREASED
     Route: 048
     Dates: start: 2014
  9. FLEXERIL [Concomitant]
     Active Substance: CYCLOBENZAPRINE HYDROCHLORIDE
     Indication: FIBROMYALGIA
     Route: 048
     Dates: start: 1997
  10. NEXIUM [Suspect]
     Active Substance: ESOMEPRAZOLE MAGNESIUM
     Indication: GASTROOESOPHAGEAL REFLUX DISEASE
     Route: 048
  11. CRESTOR [Suspect]
     Active Substance: ROSUVASTATIN CALCIUM
     Indication: BLOOD CHOLESTEROL ABNORMAL
     Route: 048
     Dates: start: 2013
  12. OMEPRAZOLE. [Suspect]
     Active Substance: OMEPRAZOLE
     Indication: GASTROOESOPHAGEAL REFLUX DISEASE
     Route: 048
  13. NEXIUM [Suspect]
     Active Substance: ESOMEPRAZOLE MAGNESIUM
     Indication: GASTROOESOPHAGEAL REFLUX DISEASE
     Route: 048
     Dates: start: 2001
  14. PHARMAPURE [Concomitant]
     Indication: BLOOD GLUCOSE INCREASED
     Route: 048
     Dates: start: 201406
  15. GABAPENTIN. [Concomitant]
     Active Substance: GABAPENTIN
     Indication: CERVICAL RADICULOPATHY
     Route: 048
     Dates: start: 201404
  16. VENLAFAXINE [Concomitant]
     Active Substance: VENLAFAXINE HYDROCHLORIDE
     Indication: DEPRESSION
     Route: 048
     Dates: start: 201405
  17. CALTRATE [Concomitant]
     Active Substance: CALCIUM CARBONATE
     Indication: BONE DISORDER
     Dosage: 1-2 TABLETS DAILY
     Route: 048
     Dates: start: 2014
  18. MULTIVITAMIN [Concomitant]
     Active Substance: VITAMINS
     Indication: SUPPLEMENTATION THERAPY
     Route: 048
     Dates: start: 201406

REACTIONS (17)
  - Fibromyalgia [Unknown]
  - Malaise [Unknown]
  - Drug dose omission [Unknown]
  - Oesophageal perforation [Unknown]
  - Neuralgia [Unknown]
  - Arthritis [Unknown]
  - Chromaturia [Unknown]
  - Memory impairment [Unknown]
  - Myalgia [Unknown]
  - Nausea [Unknown]
  - Pain [Unknown]
  - Intentional product use issue [Unknown]
  - Gastrooesophageal reflux disease [Recovered/Resolved with Sequelae]
  - Osteoporosis [Unknown]
  - Diarrhoea [Unknown]
  - Dizziness [Unknown]
  - Epigastric discomfort [Unknown]

NARRATIVE: CASE EVENT DATE: 2004
